FAERS Safety Report 15768393 (Version 2)
Quarter: 2020Q2

REPORT INFORMATION
  Report Type: Report from Study
  Country: US (occurrence: US)
  Receive Date: 20181227
  Receipt Date: 20200511
  Transmission Date: 20200713
  Serious: Yes (Hospitalization)
  Sender: FDA-Public Use
  Company Number: US-ACTELION-A-NJ2018-184168

PATIENT
  Sex: Female

DRUGS (1)
  1. TRACLEER [Suspect]
     Active Substance: BOSENTAN
     Indication: PULMONARY ARTERIAL HYPERTENSION
     Dosage: 125 MG, BID
     Route: 048

REACTIONS (9)
  - Haematoma [Unknown]
  - Swelling [Unknown]
  - Upper limb fracture [Unknown]
  - Dizziness [Unknown]
  - Pelvic fracture [Unknown]
  - Pain [Unknown]
  - Chest injury [Unknown]
  - Fall [Unknown]
  - Nausea [Unknown]
